FAERS Safety Report 17282612 (Version 1)
Quarter: 2020Q1

REPORT INFORMATION
  Report Type: Spontaneous
  Country: US (occurrence: US)
  Receive Date: 20200117
  Receipt Date: 20200117
  Transmission Date: 20200409
  Serious: Yes (Hospitalization)
  Sender: FDA-Public Use
  Company Number: US-ROCHE-2525595

PATIENT
  Sex: Male
  Weight: 86.26 kg

DRUGS (5)
  1. ATORVASTATIN [Concomitant]
     Active Substance: ATORVASTATIN
     Dosage: ONGOING:UNKNOWN
     Route: 048
     Dates: start: 20191101
  2. TRELEGY ELLIPTA [Concomitant]
     Active Substance: FLUTICASONE FUROATE\UMECLIDINIUM BROMIDE\VILANTEROL TRIFENATATE
     Dosage: ONGOING:UNKNOWN
     Route: 045
     Dates: start: 20191101
  3. POTASSIUM [Concomitant]
     Active Substance: POTASSIUM
     Dosage: ONGOING:UNKNOWN
     Route: 048
     Dates: start: 20191101
  4. ERIVEDGE [Suspect]
     Active Substance: VISMODEGIB
     Indication: BASAL CELL CARCINOMA
     Dosage: ONGOING:YES
     Route: 048
     Dates: start: 20191104
  5. LISINOPRIL. [Concomitant]
     Active Substance: LISINOPRIL
     Dosage: ONGOING:UNKNOWN
     Route: 048
     Dates: start: 20191101

REACTIONS (1)
  - Pneumonia [Unknown]
